FAERS Safety Report 21479279 (Version 1)
Quarter: 2022Q4

REPORT INFORMATION
  Report Type: Spontaneous
  Country: US (occurrence: US)
  Receive Date: 20221019
  Receipt Date: 20221019
  Transmission Date: 20230112
  Serious: No
  Sender: FDA-Public Use
  Company Number: US-PFIZER INC-202201236869

PATIENT
  Age: 78 Year
  Sex: Male

DRUGS (1)
  1. VISTARIL [Suspect]
     Active Substance: HYDROXYZINE PAMOATE
     Indication: Anxiety
     Dosage: UNK

REACTIONS (3)
  - Laryngitis [Unknown]
  - Dysphagia [Unknown]
  - Off label use [Unknown]
